FAERS Safety Report 5664814-2 (Version None)
Quarter: 2008Q1

REPORT INFORMATION
  Report Type: 
  Country: None (occurrence: None)
  Receive Date: 20080314
  Receipt Date: 20080303
  Transmission Date: 20080703
  Serious: Yes (Other)
  Sender: FDA-Public Use
  Company Number: US-PFIZER INC-2008020209

PATIENT
  Sex: Female

DRUGS (3)
  1. NEURONTIN [Suspect]
     Indication: SPINAL COLUMN STENOSIS
  2. LYRICA [Suspect]
     Indication: SPINAL COLUMN STENOSIS
  3. LYRICA [Suspect]
     Indication: MUSCLE SPASMS

REACTIONS (4)
  - ACTIVITIES OF DAILY LIVING IMPAIRED [None]
  - ASTHENIA [None]
  - MUSCLE SPASMS [None]
  - SURGERY [None]
